FAERS Safety Report 13554487 (Version 3)
Quarter: 2017Q2

REPORT INFORMATION
  Report Type: Report from Study
  Country: CO (occurrence: CO)
  Receive Date: 20170517
  Receipt Date: 20170630
  Transmission Date: 20170830
  Serious: Yes (Hospitalization)
  Sender: FDA-Public Use
  Company Number: PHHY2017CO067718

PATIENT
  Age: 33 Year
  Sex: Male
  Weight: 85 kg

DRUGS (4)
  1. CLEXANE [Concomitant]
     Active Substance: ENOXAPARIN SODIUM
     Indication: ANTICOAGULANT THERAPY
     Dosage: 60 MG, UNK
     Route: 030
  2. PREDNISOLONE. [Concomitant]
     Active Substance: PREDNISOLONE
     Indication: PRODUCT USED FOR UNKNOWN INDICATION
     Dosage: 5 MG, BID SINCE FOUR YEARS AGO
     Route: 065
  3. REVOLADE [Suspect]
     Active Substance: ELTROMBOPAG
     Indication: PLATELET COUNT DECREASED
     Dosage: 50 MG, QD
     Route: 048
     Dates: start: 20160916, end: 20170508
  4. REVOLADE [Suspect]
     Active Substance: ELTROMBOPAG
     Indication: THROMBOCYTOPENIC PURPURA

REACTIONS (24)
  - Respiratory rate decreased [Unknown]
  - Coagulation time prolonged [Unknown]
  - Pulmonary infarction [Unknown]
  - Headache [Unknown]
  - White blood cell count increased [Unknown]
  - Ear pain [Unknown]
  - Mouth haemorrhage [Unknown]
  - Back pain [Unknown]
  - Platelet count decreased [Recovered/Resolved]
  - Vascular pain [Unknown]
  - Chest pain [Unknown]
  - Pain in extremity [Unknown]
  - Amnesia [Unknown]
  - Neutrophil count increased [Unknown]
  - Gait disturbance [Unknown]
  - Erythema [Unknown]
  - Discomfort [Unknown]
  - Embolism [Unknown]
  - Pneumonia [Unknown]
  - Thrombosis [Unknown]
  - Pulmonary embolism [Unknown]
  - Haematocrit increased [Unknown]
  - Haematoma [Unknown]
  - Haemoptysis [Unknown]

NARRATIVE: CASE EVENT DATE: 201608
